FAERS Safety Report 4300238-8 (Version None)
Quarter: 2004Q1

REPORT INFORMATION
  Report Type: 
  Country: None (occurrence: None)
  Receive Date: 20040210
  Receipt Date: 20040120
  Transmission Date: 20041129
  Serious: Yes (Other)
  Sender: FDA-Public Use
  Company Number: 200310459BBE

PATIENT
  Sex: Male

DRUGS (9)
  1. KOATE [Suspect]
     Indication: HAEMOPHILIA
     Dosage: UNK, UNK; INTRAVENOUS
     Route: 042
  2. FACTOR IX COMPLEX [Suspect]
     Indication: HAEMOPHILIA
     Dosage: UNK, UNK; INTRAVENOUS
     Route: 042
  3. ANTIHEMOPHILIC FACTOR (HUMAN) [Suspect]
     Indication: HAEMOPHILIA
     Dosage: UNK, UNK; INTRAVENOUS
     Route: 042
  4. ANTIHEMOPHILIC FACTOR (HUMAN) [Suspect]
     Indication: HAEMOPHILIA
     Dosage: UNK, UNK; INTRAVENOUS
     Route: 042
  5. ANTIHEMOPHILIC FACTOR (HUMAN) [Suspect]
     Indication: HAEMOPHILIA
     Dosage: UNK, UNK; INTRAVENOUS
     Route: 042
  6. FACTOR IX COMPLEX [Suspect]
     Indication: HAEMOPHILIA
     Dosage: UNK, UNK; INTRAVENOUS
     Route: 042
  7. ANTIHEMOPHILIC FACTOR (HUMAN) [Suspect]
     Indication: HAEMOPHILIA
     Dosage: UNK, UNK; INTRAVENOUS
     Route: 042
  8. ANTIHEMOPHILIC FACTOR (HUMAN) [Suspect]
     Indication: HAEMOPHILIA
     Dosage: UNK, UNK; INTRAVENOUS
     Route: 042
  9. ANTIHEMOPHILIC FACTOR (HUMAN) [Suspect]
     Indication: HAEMOPHILIA
     Dosage: UNK, UNK; INTRAVENOUS
     Route: 042

REACTIONS (3)
  - ACQUIRED IMMUNODEFICIENCY SYNDROME [None]
  - HEPATITIS C POSITIVE [None]
  - HIV INFECTION [None]
